FAERS Safety Report 9110787 (Version 1)
Quarter: 2013Q1

REPORT INFORMATION
  Report Type: Spontaneous
  Country: US (occurrence: US)
  Receive Date: 20130219
  Receipt Date: 20130219
  Transmission Date: 20140127
  Serious: Yes (Other)
  Sender: FDA-Public Use
  Company Number: US-BRISTOL-MYERS SQUIBB COMPANY-16718983

PATIENT
  Age: 50 Year
  Sex: Female
  Weight: 54.42 kg

DRUGS (5)
  1. ORENCIA [Suspect]
     Indication: RHEUMATOID ARTHRITIS
     Dosage: 1DF=125 MG/ML, IV FOR 2 YEARS, PREVIOUS IV 19FEB10-15FEB2011?STRENGTH125MG, LAST MAY2012
     Route: 058
     Dates: start: 20111215
  2. EFFEXOR [Concomitant]
  3. PROPRANOLOL [Concomitant]
  4. ZOMIG [Concomitant]
  5. TRAMADOL [Concomitant]

REACTIONS (1)
  - Coccidioidomycosis [Unknown]
